FAERS Safety Report 8142324-0 (Version None)
Quarter: 2012Q1

REPORT INFORMATION
  Report Type: 
  Country: None (occurrence: None)
  Receive Date: 20120216
  Receipt Date: 20120206
  Transmission Date: 20120608
  Serious: No
  Sender: FDA-Public Use
  Company Number: JP-NOVOPROD-343824

PATIENT
  Age: 57 Year
  Sex: Male
  Weight: 82 kg

DRUGS (9)
  1. CRESTOR [Concomitant]
     Dosage: 2.5 MG, QD
     Route: 048
     Dates: start: 20070303
  2. VICTOZA [Suspect]
     Indication: TYPE 2 DIABETES MELLITUS
     Dosage: 0.9 MG, QD
     Route: 058
     Dates: start: 20101001, end: 20120114
  3. HUMALOG N [Concomitant]
     Dosage: 6 U, QD
     Route: 058
     Dates: start: 20101001
  4. OMEPRAZOLE [Concomitant]
     Dosage: 10 MG, QD
     Route: 048
     Dates: start: 20090131
  5. AMARYL [Concomitant]
     Dosage: 1 MG, QD
     Route: 048
     Dates: start: 20101001
  6. HUMALOG [Concomitant]
     Dosage: 6-6-6
     Route: 058
     Dates: start: 20101001
  7. HUMALOG [Concomitant]
     Dosage: 48 U, QD
     Route: 058
  8. HUMALOG N [Concomitant]
     Dosage: 16 U, QD
     Route: 058
  9. CANDESARTAN CILEXETIL [Concomitant]
     Dosage: 8 MG, QD
     Route: 048
     Dates: start: 20061230

REACTIONS (1)
  - DERMATITIS INFECTED [None]
